FAERS Safety Report 16264010 (Version 1)
Quarter: 2019Q2

REPORT INFORMATION
  Report Type: Spontaneous
  Country: US (occurrence: US)
  Receive Date: 20190502
  Receipt Date: 20190502
  Transmission Date: 20190711
  Serious: Yes (Other)
  Sender: FDA-Public Use
  Company Number: US-MYLANLABS-2019M1040414

PATIENT
  Age: 23 Year
  Sex: Male

DRUGS (3)
  1. DEXTROSE. [Concomitant]
     Active Substance: DEXTROSE
     Indication: PRODUCT USED FOR UNKNOWN INDICATION
     Dosage: EXCHANGE VOLUME OF 10 L 1.5% DEXTROSE OVERNIGHT (5 EXCHANGES, 2 L PER EXCHANGE)
     Route: 065
  2. VANCOMYCIN [Suspect]
     Active Substance: VANCOMYCIN
     Route: 033
  3. CEFTAZIDIME. [Concomitant]
     Active Substance: CEFTAZIDIME
     Indication: EVIDENCE BASED TREATMENT
     Route: 033

REACTIONS (4)
  - Drug hypersensitivity [Unknown]
  - Condition aggravated [Unknown]
  - Bandaemia [Unknown]
  - Eosinophilia [Unknown]
